FAERS Safety Report 7588337-9 (Version None)
Quarter: 2011Q3

REPORT INFORMATION
  Report Type: 
  Country: None (occurrence: None)
  Receive Date: 20110705
  Receipt Date: 20110621
  Transmission Date: 20111222
  Serious: Yes (Other)
  Sender: FDA-Public Use
  Company Number: US-BAYER-200934381NA

PATIENT
  Age: 55 Year
  Sex: Female

DRUGS (11)
  1. HEPARIN [Concomitant]
     Dosage: 25800 U, UNK
     Route: 042
     Dates: start: 20040513, end: 20040513
  2. PROPRANOLOL [Concomitant]
  3. TRASYLOL [Suspect]
     Indication: PULMONARY ARTERY THERAPEUTIC PROCEDURE
  4. FRESH FROZEN PLASMA [Concomitant]
     Dosage: UNK
     Dates: start: 20040513
  5. TRASYLOL [Suspect]
     Indication: MITRAL VALVE REPLACEMENT
     Dosage: 200 ML, UNK
     Route: 042
     Dates: start: 20040513, end: 20040513
  6. PREMARIN [Concomitant]
  7. RED BLOOD CELLS [Concomitant]
     Dosage: UNK
     Dates: start: 20040513
  8. TRASYLOL [Suspect]
     Indication: FISTULA REPAIR
  9. FENTANYL [Concomitant]
  10. TISSEEL KIT [Concomitant]
     Dosage: UNK
     Dates: start: 20040513
  11. COUMADIN [Concomitant]

REACTIONS (12)
  - MULTI-ORGAN FAILURE [None]
  - PAIN [None]
  - ANXIETY [None]
  - RENAL FAILURE [None]
  - NERVOUSNESS [None]
  - RENAL INJURY [None]
  - EMOTIONAL DISTRESS [None]
  - ANHEDONIA [None]
  - UNEVALUABLE EVENT [None]
  - DEPRESSION [None]
  - INJURY [None]
  - FEAR [None]
